FAERS Safety Report 4864426-4 (Version None)
Quarter: 2005Q4

REPORT INFORMATION
  Report Type: 
  Country: None (occurrence: None)
  Receive Date: 20051221
  Receipt Date: 20051221
  Transmission Date: 20060501
  Serious: Yes (Other)
  Sender: FDA-Public Use
  Company Number: None

PATIENT
  Age: 2 Month
  Sex: Female
  Weight: 5.8968 kg

DRUGS (1)
  1. ZANTAC [Suspect]
     Dosage: 1 ML  3 T DAY PO
     Route: 048
     Dates: start: 20051214, end: 20051214

REACTIONS (3)
  - HYPOTONIA [None]
  - LETHARGY [None]
  - SOMNOLENCE [None]
